FAERS Safety Report 12963437 (Version 2)
Quarter: 2016Q4

REPORT INFORMATION
  Report Type: Spontaneous
  Country: US (occurrence: US)
  Receive Date: 20161122
  Receipt Date: 20161214
  Transmission Date: 20170207
  Serious: Yes (Death, Hospitalization, Other)
  Sender: FDA-Public Use
  Company Number: US-AUROBINDO-AUR-APL-2016-14162

PATIENT
  Age: 10 Year
  Sex: Male

DRUGS (2)
  1. ONDANSETRON [Suspect]
     Active Substance: ONDANSETRON
     Indication: GASTROENTERITIS
     Dosage: UNK, 2 DOSES
     Route: 065
  2. MORPHINE [Concomitant]
     Active Substance: MORPHINE

REACTIONS (3)
  - Cardiac arrest [Fatal]
  - Vomiting [Unknown]
  - Ventricular tachycardia [Unknown]
